FAERS Safety Report 4452305-6 (Version None)
Quarter: 2004Q3

REPORT INFORMATION
  Report Type: 
  Country: None (occurrence: None)
  Receive Date: 20040917
  Receipt Date: 20040909
  Transmission Date: 20050211
  Serious: Yes (Hospitalization)
  Sender: FDA-Public Use
  Company Number: NZ-ROCHE-380000

PATIENT
  Sex: Male

DRUGS (1)
  1. XENICAL [Suspect]
     Indication: DRUG USE FOR UNKNOWN INDICATION
     Route: 048
     Dates: start: 20040715

REACTIONS (7)
  - ASTHMA [None]
  - CONSTIPATION [None]
  - DEPRESSED MOOD [None]
  - DIARRHOEA [None]
  - HAEMATOCHEZIA [None]
  - INSOMNIA [None]
  - PRURITUS [None]
